FAERS Safety Report 6153500-0 (Version None)
Quarter: 2009Q2

REPORT INFORMATION
  Report Type: 
  Country: None (occurrence: None)
  Receive Date: 20090413
  Receipt Date: 20090403
  Transmission Date: 20091009
  Serious: Yes (Hospitalization, Disabling)
  Sender: FDA-Public Use
  Company Number: PHHY2009ES12661

PATIENT
  Age: 83 Year
  Sex: Male

DRUGS (9)
  1. ZOMETA [Suspect]
     Indication: SKELETAL INJURY
     Dosage: 4 MG
     Route: 042
     Dates: start: 20070309, end: 20071123
  2. ZOMETA [Suspect]
     Indication: MULTIPLE MYELOMA
  3. VINCRISTINE [Concomitant]
  4. ADRIAMYCIN RDF [Concomitant]
  5. DEXAMETHASONE 4MG TAB [Concomitant]
  6. BLEOMYCIN [Concomitant]
  7. CHLORAMBUCIL [Concomitant]
  8. MELPHALAN [Concomitant]
  9. PREDNISONE TAB [Concomitant]

REACTIONS (6)
  - ABSCESS DRAINAGE [None]
  - ABSCESS JAW [None]
  - BONE DEBRIDEMENT [None]
  - OSTEONECROSIS [None]
  - PAIN [None]
  - PRIMARY SEQUESTRUM [None]
